FAERS Safety Report 4601691-2 (Version None)
Quarter: 2005Q1

REPORT INFORMATION
  Report Type: 
  Country: None (occurrence: None)
  Receive Date: 20050131
  Receipt Date: 20041122
  Transmission Date: 20050727
  Serious: Yes (Hospitalization, Other)
  Sender: FDA-Public Use
  Company Number: 200418504US

PATIENT
  Age: 54 Year
  Sex: Male
  Weight: 97 kg

DRUGS (9)
  1. KETEK [Suspect]
     Indication: BRONCHITIS
     Dosage: 800 MG QD PO
     Route: 048
     Dates: start: 20041102
  2. UNSPECIFIED CHEMOTHERAPY [Concomitant]
  3. LIPITOR [Concomitant]
  4. METOPROLOL SUCCINATE [Concomitant]
  5. ALTACE [Concomitant]
  6. IMDUR [Concomitant]
  7. NEURONTIN [Concomitant]
  8. ASPIRIN [Concomitant]
  9. PREDNISONE TAB [Concomitant]

REACTIONS (3)
  - ANAPHYLACTIC REACTION [None]
  - HYPOTENSION [None]
  - URTICARIA [None]
